FAERS Safety Report 6278909-6 (Version None)
Quarter: 2009Q3

REPORT INFORMATION
  Report Type: 
  Country: None (occurrence: None)
  Receive Date: 20090723
  Receipt Date: 20090714
  Transmission Date: 20100115
  Serious: Yes (Hospitalization)
  Sender: FDA-Public Use
  Company Number: GB-RANBAXY-2009RR-25639

PATIENT

DRUGS (1)
  1. PARACETAMOL [Suspect]
     Indication: DRUG USE FOR UNKNOWN INDICATION
     Dosage: 24 G, UNK

REACTIONS (2)
  - INTENTIONAL OVERDOSE [None]
  - LIVER INJURY [None]
